FAERS Safety Report 14623653 (Version 1)
Quarter: 2018Q1

REPORT INFORMATION
  Report Type: Spontaneous
  Country: US (occurrence: US)
  Receive Date: 20180309
  Receipt Date: 20180309
  Transmission Date: 20180509
  Serious: Yes (Hospitalization)
  Sender: FDA-Public Use
  Company Number: None

PATIENT
  Age: 78 Year
  Sex: Female

DRUGS (4)
  1. MAG-OXIDE [Concomitant]
     Active Substance: MAGNESIUM OXIDE
  2. LOSARTAN. [Concomitant]
     Active Substance: LOSARTAN
  3. VITAMIN C AND D3 [Concomitant]
  4. PROLIA [Suspect]
     Active Substance: DENOSUMAB
     Indication: SENILE OSTEOPOROSIS
     Dosage: ROUTE - INJECTION?FREQUENCY - Q6MONTHS

REACTIONS (1)
  - Limb operation [None]

NARRATIVE: CASE EVENT DATE: 20180307
